FAERS Safety Report 19732966 (Version 1)
Quarter: 2021Q3

REPORT INFORMATION
  Report Type: Other
  Country: GB (occurrence: GB)
  Receive Date: 20210823
  Receipt Date: 20210823
  Transmission Date: 20211014
  Serious: Yes (Other)
  Sender: FDA-Public Use
  Company Number: GB-HORMOSAN PHARMA GMBH-2021-15082

PATIENT
  Age: 64 Year
  Sex: Female
  Weight: 50 kg

DRUGS (5)
  1. LORAZEPAM. [Concomitant]
     Active Substance: LORAZEPAM
     Indication: AGITATION
     Dosage: 1 DOSAGE FORM, AS NECESSARY (ONE WHEN REQUIRED)
     Route: 065
     Dates: start: 20210325
  2. LAMOTRIGINE. [Concomitant]
     Active Substance: LAMOTRIGINE
     Indication: PRODUCT USED FOR UNKNOWN INDICATION
     Dosage: 2 DOSAGE FORM, QD, FOR 2 WEEKS THEN 2 TWICE A DAY
     Route: 065
     Dates: start: 20210729
  3. LANSOPRAZOLE. [Concomitant]
     Active Substance: LANSOPRAZOLE
     Indication: PRODUCT USED FOR UNKNOWN INDICATION
     Dosage: 1 DOSAGE FORM, QD (HALF A HOUR BEFORE BREAKFAST )
     Route: 065
     Dates: start: 20210325
  4. HYDROCORTISONE. [Concomitant]
     Active Substance: HYDROCORTISONE
     Indication: ECZEMA
     Dosage: 2 DOSAGE FORM, QD, AS NEEDED FOR ECZEMA IN FLEXURES OR GENITAL AREA (MILD POTENCY STEROID)
     Route: 065
     Dates: start: 20210723, end: 20210730
  5. LEVETIRACETAM. [Suspect]
     Active Substance: LEVETIRACETAM
     Indication: PRODUCT USED FOR UNKNOWN INDICATION
     Dosage: 1000 MILLIGRAM, QD
     Route: 048
     Dates: start: 20210422

REACTIONS (1)
  - Stevens-Johnson syndrome [Recovered/Resolved]

NARRATIVE: CASE EVENT DATE: 20210805
